FAERS Safety Report 7808393-X (Version None)
Quarter: 2011Q4

REPORT INFORMATION
  Report Type: 
  Country: None (occurrence: None)
  Receive Date: 20111011
  Receipt Date: 20111011
  Transmission Date: 20120403
  Serious: No
  Sender: FDA-Public Use
  Company Number: None

PATIENT
  Sex: Female

DRUGS (1)
  1. COPAXONE [Suspect]
     Dosage: 20MG DAILY SUB Q
     Route: 058
     Dates: start: 20110913, end: 20111007

REACTIONS (4)
  - FLUSHING [None]
  - MUSCULAR WEAKNESS [None]
  - CHEST DISCOMFORT [None]
  - DYSPNOEA [None]
